FAERS Safety Report 8123699-5 (Version None)
Quarter: 2012Q1

REPORT INFORMATION
  Report Type: 
  Country: None (occurrence: None)
  Receive Date: 20120208
  Receipt Date: 20120202
  Transmission Date: 20120608
  Serious: Yes (Death, Hospitalization, Other)
  Sender: FDA-Public Use
  Company Number: US-ELI_LILLY_AND_COMPANY-US201110004548

PATIENT
  Sex: Male
  Weight: 113.38 kg

DRUGS (20)
  1. DESYREL [Concomitant]
     Dosage: 50 MG, EACH EVENING
  2. BENICAR [Concomitant]
     Dosage: 10 MG, QD
     Route: 048
  3. FORADIL [Concomitant]
     Dosage: 12 UG, BID
     Route: 048
  4. ZYFLO [Concomitant]
     Dosage: 600 MG, QID
     Route: 048
  5. QVAR 40 [Concomitant]
     Dosage: 160 UG, QD
  6. UNIPHYL [Concomitant]
     Dosage: 400 MG, QD
     Route: 048
  7. NEXIUM [Concomitant]
     Dosage: 40 MG, QD
     Route: 048
  8. COLACE [Concomitant]
     Dosage: 100 MG, PRN
  9. LOVASTATIN [Concomitant]
     Indication: HYPERCHOLESTEROLAEMIA
     Dosage: 20 MG, QD
     Route: 048
  10. LORAZEPAM [Concomitant]
     Dosage: 1 MG, EACH EVENING
     Route: 048
  11. GUAIFENESIN [Concomitant]
     Dosage: 600 MG, PRN
     Route: 048
  12. PREDNISONE [Concomitant]
     Dosage: 5 MG, UNKNOWN
  13. SYNTHROID [Concomitant]
     Dosage: 200 UG, QD
  14. BYETTA [Suspect]
     Dosage: 10 UG, BID
     Route: 058
     Dates: start: 20051201, end: 20071101
  15. NOVOLIN 70/30 [Concomitant]
     Indication: DIABETES MELLITUS
     Dosage: 35 U, EACH MORNING
     Route: 058
  16. NOVOLIN 70/30 [Concomitant]
     Dosage: 25 U, EACH EVENING
     Route: 058
  17. GLUCOVANCE [Concomitant]
     Indication: DIABETES MELLITUS
     Dosage: UNK, QD
  18. ALBUTEROL [Concomitant]
     Dosage: 180 UG, EVERY 4 HRS
     Route: 055
  19. PULMICORT-100 [Concomitant]
     Dosage: 200 UG, TID
  20. XOLAIR [Concomitant]
     Dosage: 75 MG, UNK

REACTIONS (4)
  - PANCREATIC CARCINOMA [None]
  - PULMONARY EMBOLISM [None]
  - HEPATIC NEOPLASM MALIGNANT [None]
  - RENAL FAILURE ACUTE [None]
